FAERS Safety Report 24731064 (Version 1)
Quarter: 2024Q4

REPORT INFORMATION
  Report Type: Spontaneous
  Country: CN (occurrence: CN)
  Receive Date: 20241213
  Receipt Date: 20241213
  Transmission Date: 20250114
  Serious: Yes (Other)
  Sender: RANBAXY
  Company Number: CN-SUN PHARMACEUTICAL INDUSTRIES LTD-2024R1-484120

PATIENT
  Age: 34 Year
  Sex: Female

DRUGS (3)
  1. DOCETAXEL [Suspect]
     Active Substance: DOCETAXEL
     Indication: Invasive ductal breast carcinoma
     Dosage: 120 MILLIGRAM, D1 (5 CYCLES)
     Route: 065
     Dates: end: 201609
  2. PIRARUBICIN [Suspect]
     Active Substance: PIRARUBICIN
     Indication: Invasive ductal breast carcinoma
     Dosage: 50 MILLIGRAM, D1 (5 CYCLES)
     Route: 065
  3. PIRARUBICIN [Suspect]
     Active Substance: PIRARUBICIN
     Dosage: 30 MILLIGRAM, D2 (5 CYCLES)
     Route: 065
     Dates: end: 201609

REACTIONS (1)
  - Neoplasm recurrence [Unknown]
